FAERS Safety Report 16762062 (Version 1)
Quarter: 2019Q3

REPORT INFORMATION
  Report Type: Spontaneous
  Country: US (occurrence: US)
  Receive Date: 20190830
  Receipt Date: 20190830
  Transmission Date: 20191005
  Serious: No
  Sender: FDA-Public Use
  Company Number: US-BIOGEN-2019BI00778265

PATIENT
  Sex: Female

DRUGS (1)
  1. SPINRAZA [Suspect]
     Active Substance: NUSINERSEN
     Indication: SPINAL MUSCULAR ATROPHY
     Dosage: 3 LOADING DOSES AT 14 DAY INTERVALS, 4TH DOSE 30 DAYS AFTER 3RD DOSE, THEN EVERY 4 MONTHS
     Route: 037

REACTIONS (1)
  - Malaise [Unknown]
